FAERS Safety Report 6441624-X (Version None)
Quarter: 2009Q4

REPORT INFORMATION
  Report Type: 
  Country: None (occurrence: None)
  Receive Date: 20091116
  Receipt Date: 20091105
  Transmission Date: 20100525
  Serious: Yes (Hospitalization)
  Sender: FDA-Public Use
  Company Number: US-AMGEN-QUU371888

PATIENT
  Sex: Female
  Weight: 58.1 kg

DRUGS (1)
  1. ENBREL [Suspect]
     Indication: PSORIATIC ARTHROPATHY
     Route: 058
     Dates: start: 20060227

REACTIONS (4)
  - CARDIAC ENZYMES INCREASED [None]
  - CHEST DISCOMFORT [None]
  - DYSPNOEA [None]
  - MALAISE [None]
